FAERS Safety Report 9350500 (Version 1)
Quarter: 2013Q2

REPORT INFORMATION
  Report Type: Spontaneous
  Country: US (occurrence: US)
  Receive Date: 20130617
  Receipt Date: 20130617
  Transmission Date: 20140414
  Serious: No
  Sender: FDA-Public Use
  Company Number: US-PFIZER INC-2013177211

PATIENT
  Age: 3 Year
  Sex: Female
  Weight: 15.5 kg

DRUGS (2)
  1. GENOTROPIN [Suspect]
     Indication: GROWTH RETARDATION
     Dosage: UNK
     Route: 058
     Dates: start: 20130607
  2. INSULIN [Concomitant]
     Dosage: UNK

REACTIONS (1)
  - Swelling face [Not Recovered/Not Resolved]
